FAERS Safety Report 13243193 (Version 1)
Quarter: 2017Q1

REPORT INFORMATION
  Report Type: Report from Study
  Country: None (occurrence: US)
  Receive Date: 20170216
  Receipt Date: 20170216
  Transmission Date: 20170428
  Serious: Yes (Hospitalization)
  Sender: FDA-Public Use
  Company Number: US-ABBVIE-10P-163-0629463-00

PATIENT
  Age: 33 Year
  Sex: Female

DRUGS (13)
  1. LACHYDRIN [Concomitant]
     Indication: PSORIASIS
     Dates: start: 20090416
  2. FOLIC ACID. [Concomitant]
     Active Substance: FOLIC ACID
     Indication: PSORIASIS
     Dates: start: 20080510
  3. SERTRALINE [Concomitant]
     Active Substance: SERTRALINE HYDROCHLORIDE
     Indication: DEPRESSION
     Dates: start: 1987
  4. TACLONEX [Concomitant]
     Active Substance: BETAMETHASONE DIPROPIONATE\CALCIPOTRIENE\CALCIPOTRIENE HYDRATE
     Indication: PSORIASIS
     Dates: start: 20080606
  5. CLOBEX [Concomitant]
     Active Substance: CLOBETASOL PROPIONATE
     Indication: PSORIASIS
     Dosage: 1 SPRAY
     Dates: start: 20080510
  6. NARROWBAND PHOTOTHERAPY [Concomitant]
     Indication: PSORIASIS
     Dosage: 1 TREATMENT
     Dates: start: 200810
  7. UREA. [Concomitant]
     Active Substance: UREA
     Indication: PSORIASIS
     Dates: start: 20080904
  8. CLINDAMYCIN. [Concomitant]
     Active Substance: CLINDAMYCIN
     Indication: ACNE
     Dates: start: 20100121
  9. COAL TAR. [Concomitant]
     Active Substance: COAL TAR
     Indication: PSORIASIS
     Dates: start: 2007
  10. HUMIRA [Suspect]
     Active Substance: ADALIMUMAB
     Indication: PSORIASIS
     Route: 058
     Dates: start: 20080523
  11. HUMIRA [Suspect]
     Active Substance: ADALIMUMAB
     Route: 058
     Dates: start: 20091205, end: 20091219
  12. DOVONEX [Concomitant]
     Active Substance: CALCIPOTRIENE
     Indication: PSORIASIS
     Dates: start: 2008
  13. MARVELON [Concomitant]
     Active Substance: DESOGESTREL\ETHINYL ESTRADIOL
     Indication: CONTRACEPTION
     Dates: start: 1999, end: 20091223

REACTIONS (1)
  - Complication of pregnancy [Not Recovered/Not Resolved]

NARRATIVE: CASE EVENT DATE: 20100211
